FAERS Safety Report 20770097 (Version 1)
Quarter: 2022Q2

REPORT INFORMATION
  Report Type: Spontaneous
  Country: US (occurrence: None)
  Receive Date: 20220429
  Receipt Date: 20220429
  Transmission Date: 20220721
  Serious: Yes (Other)
  Sender: FDA-Public Use
  Company Number: None

PATIENT
  Age: 87 Year
  Sex: Female
  Weight: 64.2 kg

DRUGS (4)
  1. TRAMADOL [Suspect]
     Active Substance: TRAMADOL
     Indication: Pain
     Dosage: FREQUENCY : 3 TIMES A DAY;?
     Route: 048
     Dates: start: 20151217, end: 20220330
  2. TRAMADOL [Suspect]
     Active Substance: TRAMADOL
     Indication: Arthralgia
  3. SERTRALINE [Concomitant]
     Active Substance: SERTRALINE HYDROCHLORIDE
     Dates: start: 20170329
  4. PANTOPRAZOLE SODIUM [Concomitant]
     Active Substance: PANTOPRAZOLE SODIUM
     Dates: start: 20210624

REACTIONS (6)
  - Amnesia [None]
  - Confusional state [None]
  - Disorientation [None]
  - Agitation [None]
  - Abnormal behaviour [None]
  - Overdose [None]

NARRATIVE: CASE EVENT DATE: 20220330
